FAERS Safety Report 25161689 (Version 4)
Quarter: 2025Q4

REPORT INFORMATION
  Report Type: Spontaneous
  Country: US (occurrence: US)
  Receive Date: 20250404
  Receipt Date: 20251226
  Transmission Date: 20260117
  Serious: No
  Sender: TAKEDA
  Company Number: US-TAKEDA-2025TUS031578

PATIENT
  Age: 35 Year
  Sex: Male
  Weight: 81 kg

DRUGS (3)
  1. ENTYVIO [Suspect]
     Active Substance: VEDOLIZUMAB
     Indication: Crohn^s disease
     Dosage: 300 MILLIGRAM, Q4WEEKS
     Dates: start: 20241202
  2. ENTYVIO [Suspect]
     Active Substance: VEDOLIZUMAB
     Indication: Crohn^s disease
     Dosage: 108 MILLIGRAM, Q2WEEKS
  3. ENTYVIO [Suspect]
     Active Substance: VEDOLIZUMAB

REACTIONS (7)
  - Haemorrhage [Unknown]
  - Catheter site swelling [Unknown]
  - Injection site discharge [Unknown]
  - Device leakage [Unknown]
  - Incorrect dose administered [Unknown]
  - Injection site erythema [Unknown]
  - Incorrect route of product administration [Recovered/Resolved]

NARRATIVE: CASE EVENT DATE: 20250325
